FAERS Safety Report 23582384 (Version 1)
Quarter: 2024Q1

REPORT INFORMATION
  Report Type: Other
  Country: FR (occurrence: FR)
  Receive Date: 20240229
  Receipt Date: 20240229
  Transmission Date: 20240410
  Serious: Yes (Hospitalization)
  Sender: FDA-Public Use
  Company Number: None

PATIENT
  Age: 37 Year
  Sex: Female

DRUGS (3)
  1. IBUPROFEN [Suspect]
     Active Substance: IBUPROFEN
     Indication: Product used for unknown indication
     Dosage: 4 DOSAGE FORM, TOTAL
     Route: 048
     Dates: start: 20221015, end: 20221015
  2. TEGRETOL [Suspect]
     Active Substance: CARBAMAZEPINE
     Indication: Product used for unknown indication
     Dosage: UNK, ENTRE 5 ET 10 CP PRISE UNIQUE
     Route: 048
     Dates: start: 20221015, end: 20221015
  3. BUPRENORPHINE [Suspect]
     Active Substance: BUPRENORPHINE
     Indication: Product used for unknown indication
     Dosage: 60 MILLIGRAM, TOTAL
     Route: 048
     Dates: start: 20221015, end: 20221015

REACTIONS (3)
  - Poisoning deliberate [Recovered/Resolved]
  - Drug use disorder [Recovered/Resolved]
  - Somnolence [Recovered/Resolved]

NARRATIVE: CASE EVENT DATE: 20221015
